FAERS Safety Report 4962233-5 (Version None)
Quarter: 2006Q2

REPORT INFORMATION
  Report Type: 
  Country: None (occurrence: None)
  Receive Date: 20060404
  Receipt Date: 20060327
  Transmission Date: 20061013
  Serious: Yes (Hospitalization)
  Sender: FDA-Public Use
  Company Number: PHHO2006JP05222

PATIENT
  Age: 87 Year
  Sex: Female

DRUGS (7)
  1. DIOVAN [Suspect]
     Indication: HYPERTENSION
     Dosage: 80 MG, QD
     Route: 048
     Dates: start: 20030228, end: 20050915
  2. LANDEL [Concomitant]
     Indication: HYPERTENSION
     Dates: start: 20050308, end: 20050915
  3. SERMION [Concomitant]
     Indication: CEREBRAL INFARCTION
     Dates: start: 20020125, end: 20050915
  4. PERSANTIN [Concomitant]
     Indication: MYOCARDIAL INFARCTION
     Dates: start: 19961127, end: 20050915
  5. CERCINE [Concomitant]
     Indication: HYPERTENSION
     Dates: start: 20000818, end: 20050915
  6. PROPACIL [Concomitant]
     Indication: HYPERTHYROIDISM
     Dates: start: 20020613, end: 20050915
  7. ASPIRIN [Concomitant]
     Dates: end: 20050915

REACTIONS (1)
  - FALL [None]
